FAERS Safety Report 16134316 (Version 1)
Quarter: 2019Q1

REPORT INFORMATION
  Report Type: Report from Study
  Country: US (occurrence: US)
  Receive Date: 20190329
  Receipt Date: 20190329
  Transmission Date: 20190418
  Serious: Yes (Hospitalization)
  Sender: FDA-Public Use
  Company Number: US-BAUSCH-BL-2018-021638

PATIENT
  Sex: Male
  Weight: 93.07 kg

DRUGS (8)
  1. UCERIS [Suspect]
     Active Substance: BUDESONIDE
     Indication: DIARRHOEA
     Route: 048
     Dates: start: 2018, end: 201902
  2. UCERIS [Suspect]
     Active Substance: BUDESONIDE
     Indication: PRODUCT USE IN UNAPPROVED INDICATION
     Dosage: DOSE DECREASED, EVERY THREE TO FOUR DAYS
     Route: 048
     Dates: start: 2019
  3. BUDESONIDE. [Suspect]
     Active Substance: BUDESONIDE
     Indication: PRODUCT USED FOR UNKNOWN INDICATION
     Route: 065
     Dates: start: 2019
  4. LEVOTHYROXINE. [Concomitant]
     Active Substance: LEVOTHYROXINE
     Indication: PRODUCT USED FOR UNKNOWN INDICATION
  5. TACROLIMUS. [Concomitant]
     Active Substance: TACROLIMUS
     Indication: PRODUCT USED FOR UNKNOWN INDICATION
  6. UCERIS [Suspect]
     Active Substance: BUDESONIDE
     Indication: GASTROINTESTINAL INFLAMMATION
     Dosage: STARTED TAKING OVER A YEAR AGO
     Route: 048
     Dates: start: 2017, end: 201807
  7. MYFORTIC [Concomitant]
     Active Substance: MYCOPHENOLATE SODIUM
     Indication: PRODUCT USED FOR UNKNOWN INDICATION
  8. VITAMIN D [Concomitant]
     Active Substance: CHOLECALCIFEROL
     Indication: PRODUCT USED FOR UNKNOWN INDICATION

REACTIONS (11)
  - Surgery [Recovered/Resolved]
  - Therapy cessation [Unknown]
  - Product availability issue [Unknown]
  - Abdominal pain upper [Unknown]
  - Gastric disorder [Unknown]
  - Intentional product use issue [Unknown]
  - Symptom recurrence [Not Recovered/Not Resolved]
  - Diarrhoea [Unknown]
  - Gastrointestinal inflammation [Not Recovered/Not Resolved]
  - Therapeutic product effective for unapproved indication [Unknown]
  - Product substitution issue [Unknown]

NARRATIVE: CASE EVENT DATE: 2017
